FAERS Safety Report 11485597 (Version 1)
Quarter: 2015Q3

REPORT INFORMATION
  Report Type: Spontaneous
  Country: US (occurrence: None)
  Receive Date: 20150909
  Receipt Date: 20150909
  Transmission Date: 20151125
  Serious: Yes (Disabling)
  Sender: FDA-Public Use
  Company Number: None

PATIENT
  Age: 59 Year
  Sex: Male
  Weight: 90.72 kg

DRUGS (3)
  1. LEVOFLOXACIN LEVAQUIN GENERIC [Suspect]
     Active Substance: LEVOFLOXACIN
     Indication: OROPHARYNGEAL PAIN
     Route: 048
     Dates: start: 20150214, end: 20150325
  2. MULTI VITAMIN CENTRUM [Concomitant]
  3. LISENEPREL [Concomitant]

REACTIONS (3)
  - Arthropathy [None]
  - Swelling [None]
  - Tendon disorder [None]

NARRATIVE: CASE EVENT DATE: 20150214
